FAERS Safety Report 16969926 (Version 1)
Quarter: 2019Q4

REPORT INFORMATION
  Report Type: Spontaneous
  Country: US (occurrence: US)
  Receive Date: 20190910
  Receipt Date: 20190910
  Transmission Date: 20200122
  Serious: Yes (Hospitalization)
  Sender: FDA-Public Use
  Company Number: None

PATIENT
  Age: 75 Year
  Sex: Male
  Weight: 80.2 kg

DRUGS (1)
  1. LENALIDOMIDE (CC-5013) [Suspect]
     Active Substance: LENALIDOMIDE
     Dates: end: 20170301

REACTIONS (19)
  - Kyphosis [None]
  - Malaise [None]
  - Sputum discoloured [None]
  - Cardiac arrest [None]
  - Pyrexia [None]
  - Mycobacterial infection [None]
  - Staphylococcus test positive [None]
  - Cough [None]
  - Pulseless electrical activity [None]
  - Dyspnoea exertional [None]
  - Productive cough [None]
  - Weight decreased [None]
  - Restrictive pulmonary disease [None]
  - Cardiac failure congestive [None]
  - General physical health deterioration [None]
  - Night sweats [None]
  - Endocarditis [None]
  - Complication of device insertion [None]
  - Hypoxia [None]

NARRATIVE: CASE EVENT DATE: 20170302
